FAERS Safety Report 12632711 (Version 2)
Quarter: 2016Q3

REPORT INFORMATION
  Report Type: Spontaneous
  Country: US (occurrence: US)
  Receive Date: 20160808
  Receipt Date: 20160808
  Transmission Date: 20161109
  Serious: No
  Sender: FDA-Public Use
  Company Number: US-BEH-2015056585

PATIENT
  Sex: Male
  Weight: 47 kg

DRUGS (14)
  1. DIPHENHYDRAMINE. [Concomitant]
     Active Substance: DIPHENHYDRAMINE
  2. OXYCODONE HYDROCHLORIDE. [Concomitant]
     Active Substance: OXYCODONE HYDROCHLORIDE
     Dosage: 5 MG/5 ML SOL
  3. FLONASE [Concomitant]
     Active Substance: FLUTICASONE PROPIONATE
  4. ACETAMINOPHEN. [Concomitant]
     Active Substance: ACETAMINOPHEN
  5. HIZENTRA [Suspect]
     Active Substance: HUMAN IMMUNOGLOBULIN G
     Indication: HYPOGAMMAGLOBULINAEMIA
     Route: 058
     Dates: start: 20151005
  6. LIDOCAINE/PRILOCAINE [Concomitant]
     Active Substance: LIDOCAINE\PRILOCAINE
  7. FLOVENT HFA [Concomitant]
     Active Substance: FLUTICASONE PROPIONATE
  8. BENADRYL [Concomitant]
     Active Substance: DIPHENHYDRAMINE HYDROCHLORIDE
     Dosage: LIQUI-GELS
  9. TYLENOL [Concomitant]
     Active Substance: ACETAMINOPHEN
  10. ZOFRAN [Concomitant]
     Active Substance: ONDANSETRON HYDROCHLORIDE
  11. AMOXICILLIN. [Concomitant]
     Active Substance: AMOXICILLIN
  12. ALBUTEROL. [Concomitant]
     Active Substance: ALBUTEROL
  13. EPI-PEN AUTOINJECTOR [Concomitant]
  14. SM SALINE SOLUTION [Concomitant]

REACTIONS (2)
  - Nasopharyngitis [Unknown]
  - Sinusitis [Unknown]
